FAERS Safety Report 8449499-4 (Version None)
Quarter: 2012Q2

REPORT INFORMATION
  Report Type: 
  Country: None (occurrence: None)
  Receive Date: 20120619
  Receipt Date: 20120614
  Transmission Date: 20120825
  Serious: Yes (Hospitalization, Other)
  Sender: FDA-Public Use
  Company Number: US-TEVA-343204USA

PATIENT
  Sex: Female
  Weight: 81.72 kg

DRUGS (2)
  1. LEVOTHYROXINE SODIUM [Concomitant]
     Indication: HYPOTHYROIDISM
  2. PARAGARD T 380A [Suspect]
     Indication: CONTRACEPTION
     Route: 015
     Dates: start: 20000101, end: 20000101

REACTIONS (9)
  - ANAEMIA [None]
  - POSTOPERATIVE FEVER [None]
  - MENORRHAGIA [None]
  - DYSPAREUNIA [None]
  - MEDICAL DEVICE COMPLICATION [None]
  - OVARIAN CYST [None]
  - DIABETES MELLITUS [None]
  - DYSGEUSIA [None]
  - VAGINAL HAEMORRHAGE [None]
